FAERS Safety Report 4802926-3 (Version None)
Quarter: 2005Q4

REPORT INFORMATION
  Report Type: 
  Country: None (occurrence: None)
  Receive Date: 20051013
  Receipt Date: 20050930
  Transmission Date: 20060501
  Serious: Yes (Other)
  Sender: FDA-Public Use
  Company Number: 2005137724

PATIENT
  Age: 2 Year
  Sex: Male
  Weight: 8.5 kg

DRUGS (5)
  1. GENOTONORM (SOMATROPIN) [Suspect]
     Indication: HYPOPITUITARISM
     Dosage: 0.3 MG DAILY, SUBCUTANEOUS
     Route: 058
     Dates: start: 20050120
  2. DESMOPRESSIN ACETATE [Concomitant]
  3. LEVOTHYROXINE SODIUM [Concomitant]
  4. HYDROCORTISONE [Concomitant]
  5. CLONAZEPAM [Concomitant]

REACTIONS (2)
  - CONDITION AGGRAVATED [None]
  - CRANIOPHARYNGIOMA [None]
